FAERS Safety Report 7507248 (Version 9)
Quarter: 2012Q4

REPORT INFORMATION
  Report Type: 
  Country: US (occurrence: US)
  Receive Date: 20100729
  Receipt Date: 20121226
  Transmission Date: 20130627
  Serious: Yes (Life-Threatening, Hospitalization, Congenital Anomaly, Other)
  Sender: FDA-Public Use
  Company Number: US-PFIZER INC-2010092594

PATIENT
  Sex: Male
  Weight: 2 kg

DRUGS (10)
  1. ZOLOFT [Suspect]
     Dosage: 50 mg, UNK
     Route: 064
     Dates: start: 19990616
  2. GYNAZOLE [Concomitant]
     Dosage: 2 %, one application
     Route: 064
     Dates: start: 20041204
  3. CHROMAGEN FORTE [Concomitant]
     Dosage: UNK
     Route: 064
     Dates: start: 20040920
  4. VISTARIL [Concomitant]
     Dosage: 50 mg, UNK
     Route: 064
     Dates: start: 20050303
  5. TERBUTALINE [Concomitant]
     Dosage: 25 mg, UNK
     Route: 064
     Dates: start: 20050303
  6. LEXAPRO [Concomitant]
     Dosage: UNK
     Route: 064
  7. WELLBUTRIN [Concomitant]
     Dosage: UNK
     Route: 064
  8. ORTHO-NOVUM [Concomitant]
     Indication: BIRTH CONTROL
     Dosage: UNK
     Route: 064
  9. ADVIL [Concomitant]
     Dosage: UNK
     Route: 064
  10. IBUPROFEN [Concomitant]
     Dosage: UNK
     Route: 064

REACTIONS (26)
  - Foetal exposure during pregnancy [Unknown]
  - Congenital anomaly [Unknown]
  - Ventricular septal defect [Recovering/Resolving]
  - Pulmonary hypertension [Unknown]
  - Congenital coronary artery malformation [Unknown]
  - Takayasu^s arteritis [Unknown]
  - Atrial septal defect [Unknown]
  - Tricuspid valve incompetence [Unknown]
  - Cardiac septal defect [Unknown]
  - Bronchiolitis [Unknown]
  - Pulmonary oedema [Unknown]
  - Cyanosis [Recovered/Resolved]
  - Cellulitis [Unknown]
  - Acute sinusitis [Unknown]
  - Otitis media [Unknown]
  - Oesophageal stenosis [Unknown]
  - Cardiomegaly [Unknown]
  - Tachypnoea [Recovered/Resolved]
  - Haematuria [Unknown]
  - Jaundice neonatal [Unknown]
  - Lymphadenitis [Unknown]
  - Upper respiratory tract infection [Unknown]
  - Right aortic arch [Unknown]
  - Vascular anomaly [Unknown]
  - Tricuspid valve stenosis [Unknown]
  - Tracheal disorder [Unknown]
